FAERS Safety Report 12488397 (Version 1)
Quarter: 2016Q2

REPORT INFORMATION
  Report Type: Report from Study
  Country: US (occurrence: US)
  Receive Date: 20160622
  Receipt Date: 20160622
  Transmission Date: 20160815
  Serious: Yes (Life-Threatening, Other)
  Sender: FDA-Public Use
  Company Number: US-AMGEN-USASL2016077889

PATIENT
  Age: 56 Year
  Sex: Female

DRUGS (1)
  1. PROLIA [Suspect]
     Active Substance: DENOSUMAB
     Indication: PRODUCT USED FOR UNKNOWN INDICATION
     Dosage: UNK
     Route: 065

REACTIONS (4)
  - Impaired healing [Not Recovered/Not Resolved]
  - Gastrointestinal haemorrhage [Unknown]
  - Osteonecrosis of jaw [Unknown]
  - Tooth disorder [Unknown]

NARRATIVE: CASE EVENT DATE: 201511
